FAERS Safety Report 5809088-4 (Version None)
Quarter: 2008Q3

REPORT INFORMATION
  Report Type: 
  Country: None (occurrence: None)
  Receive Date: 20080711
  Receipt Date: 20080711
  Transmission Date: 20090109
  Serious: Yes (Other)
  Sender: FDA-Public Use
  Company Number: None

PATIENT
  Age: 43 Year
  Sex: Female

DRUGS (1)
  1. FLUORESCEIN EYE DROPS [Suspect]
     Indication: OPHTHALMOLOGICAL EXAMINATION
     Dates: start: 20080624, end: 20080624

REACTIONS (7)
  - EYE PAIN [None]
  - HEADACHE [None]
  - MULTIPLE SCLEROSIS [None]
  - OPTIC NEURITIS [None]
  - VIRAL INFECTION [None]
  - VISION BLURRED [None]
  - VISUAL ACUITY REDUCED [None]
